FAERS Safety Report 7757789-3 (Version None)
Quarter: 2011Q3

REPORT INFORMATION
  Report Type: 
  Country: None (occurrence: None)
  Receive Date: 20110918
  Receipt Date: 20110907
  Transmission Date: 20111222
  Serious: Yes (Other)
  Sender: FDA-Public Use
  Company Number: US-ASTRAZENECA-2011SE54204

PATIENT
  Age: 73 Year
  Sex: Female

DRUGS (3)
  1. ESTROGEN BLOCKER [Concomitant]
  2. NEXIUM [Suspect]
     Route: 048
  3. ARIMIDEX [Suspect]
     Route: 048

REACTIONS (3)
  - NEOPLASM [None]
  - BREAST CANCER [None]
  - VIRAL SINUSITIS [None]
